FAERS Safety Report 6790208-2 (Version None)
Quarter: 2010Q2

REPORT INFORMATION
  Report Type: 
  Country: None (occurrence: None)
  Receive Date: 20100520
  Receipt Date: 20090331
  Transmission Date: 20101027
  Serious: Yes (Other)
  Sender: FDA-Public Use
  Company Number: 2009191451

PATIENT
  Age: 58 Year
  Sex: Female
  Weight: 98 kg

DRUGS (5)
  1. PROVERA [Suspect]
     Indication: MENOPAUSE
     Dates: start: 19850101, end: 19960101
  2. MEDROXYPROGESTERONE ACETATE [Suspect]
     Indication: MENOPAUSE
     Dates: start: 19850101, end: 19960101
  3. MEDROXYPROGESTERONE [Suspect]
     Indication: MENOPAUSE
     Dates: start: 19850101, end: 19960101
  4. PREMARIN [Suspect]
     Indication: MENOPAUSE
     Dates: start: 19850101, end: 19960101
  5. PREMPRO [Suspect]
     Indication: MENOPAUSE
     Dates: start: 19960101, end: 20030101

REACTIONS (1)
  - BREAST CANCER FEMALE [None]
